FAERS Safety Report 5962827-4 (Version None)
Quarter: 2008Q4

REPORT INFORMATION
  Report Type: 
  Country: None (occurrence: None)
  Receive Date: 20081124
  Receipt Date: 20081113
  Transmission Date: 20090506
  Serious: No
  Sender: FDA-Public Use
  Company Number: US-BAYER-200834343NA

PATIENT
  Age: 62 Year
  Sex: Female
  Weight: 53 kg

DRUGS (6)
  1. AVELOX [Suspect]
     Indication: POSTOPERATIVE WOUND INFECTION
     Dosage: TOTAL DAILY DOSE: 400 MG  UNIT DOSE: 400 MG
     Dates: start: 20080826, end: 20080901
  2. ESTRADIOL [Concomitant]
  3. XANAX [Concomitant]
  4. SINGULAIR [Concomitant]
  5. DYAZIDE [Concomitant]
  6. TRAZODONE HCL [Concomitant]

REACTIONS (1)
  - ARTHRALGIA [None]
